FAERS Safety Report 7113818-1 (Version None)
Quarter: 2010Q4

REPORT INFORMATION
  Report Type: 
  Country: None (occurrence: None)
  Receive Date: 20101119
  Receipt Date: 20101109
  Transmission Date: 20110411
  Serious: Yes (Other)
  Sender: FDA-Public Use
  Company Number: US-PFIZER INC-2010123915

PATIENT
  Sex: Male
  Weight: 13 kg

DRUGS (14)
  1. GENOTROPIN [Suspect]
     Indication: DWARFISM
     Dosage: 0.4 MG, 1X/DAY
     Route: 058
     Dates: start: 20080101, end: 20100801
  2. GENOTROPIN [Suspect]
     Dosage: 0.6 MG, UNK
     Route: 058
     Dates: start: 20100801, end: 20100923
  3. GENOTROPIN [Suspect]
     Dosage: UNK
     Dates: end: 20101001
  4. CALCITRIOL [Concomitant]
     Dosage: UNK
  5. CALCIUM CARBONATE [Concomitant]
     Dosage: UNK
  6. MIRALAX [Concomitant]
     Dosage: UNK
  7. NUROMAX [Concomitant]
     Dosage: UNK
  8. ZOFRAN [Concomitant]
     Dosage: UNK
  9. POLY-VI-SOL [Concomitant]
     Dosage: UNK
  10. PREVACID [Concomitant]
     Indication: GASTROOESOPHAGEAL REFLUX DISEASE
     Dosage: UNK
     Dates: start: 20070101
  11. PULMICORT [Concomitant]
     Indication: LUNG DISORDER
     Dosage: UNK
     Dates: start: 20070101
  12. XOPENEX [Concomitant]
     Dosage: UNK
  13. ROBINUL [Concomitant]
     Indication: SALIVARY HYPERSECRETION
     Dosage: UNK
  14. PREDNISONE [Concomitant]
     Dosage: UNK

REACTIONS (4)
  - HEART RATE INCREASED [None]
  - OVERDOSE [None]
  - OXYGEN SATURATION DECREASED [None]
  - PNEUMONIA [None]
